FAERS Safety Report 6986395-3 (Version None)
Quarter: 2010Q3

REPORT INFORMATION
  Report Type: 
  Country: None (occurrence: None)
  Receive Date: 20100915
  Receipt Date: 20090702
  Transmission Date: 20110219
  Serious: No
  Sender: FDA-Public Use
  Company Number: US-WYE-H10029509

PATIENT
  Sex: Male
  Weight: 114.41 kg

DRUGS (1)
  1. PRISTIQ [Suspect]
     Route: 048
     Dates: start: 20090501

REACTIONS (1)
  - WEIGHT INCREASED [None]
